FAERS Safety Report 23862814 (Version 1)
Quarter: 2024Q2

REPORT INFORMATION
  Report Type: Spontaneous
  Country: JP (occurrence: JP)
  Receive Date: 20240516
  Receipt Date: 20240516
  Transmission Date: 20240716
  Serious: Yes (Other)
  Sender: FDA-Public Use
  Company Number: JP-ELI_LILLY_AND_COMPANY-JP202405008125

PATIENT
  Sex: Female

DRUGS (2)
  1. DULOXETINE HYDROCHLORIDE [Suspect]
     Active Substance: DULOXETINE HYDROCHLORIDE
     Indication: Fibromyalgia
     Route: 048
  2. PAROXETINE [Concomitant]
     Active Substance: PAROXETINE

REACTIONS (11)
  - Dyspnoea [Unknown]
  - Angina pectoris [Unknown]
  - Loss of consciousness [Unknown]
  - Anaphylactic reaction [Unknown]
  - Throat tightness [Unknown]
  - Dizziness [Unknown]
  - Urticaria [Unknown]
  - Rib fracture [Unknown]
  - Hyperventilation [Unknown]
  - Panic attack [Unknown]
  - Constipation [Unknown]
